FAERS Safety Report 18040451 (Version 1)
Quarter: 2020Q3

REPORT INFORMATION
  Report Type: Spontaneous
  Country: MT (occurrence: MT)
  Receive Date: 20200717
  Receipt Date: 20200717
  Transmission Date: 20201103
  Serious: Yes (Other)
  Sender: FDA-Public Use
  Company Number: MT-FRESENIUS KABI-FK202007239

PATIENT
  Age: 4 Month
  Sex: Female

DRUGS (1)
  1. PROPRANOLOL HYDROCHLORIDE (MANUFACTURER UNKNOWN) [Suspect]
     Active Substance: PROPRANOLOL HYDROCHLORIDE
     Indication: INFANTILE HAEMANGIOMA
     Dosage: IN THREE DIVIDED DOSES
     Route: 065

REACTIONS (4)
  - Klebsiella infection [Recovered/Resolved]
  - Product use in unapproved indication [Recovered/Resolved]
  - Necrosis [Recovered/Resolved]
  - Escherichia infection [Recovered/Resolved]
